FAERS Safety Report 25610848 (Version 1)
Quarter: 2025Q3

REPORT INFORMATION
  Report Type: Spontaneous
  Country: US (occurrence: US)
  Receive Date: 20250728
  Receipt Date: 20250728
  Transmission Date: 20251020
  Serious: Yes (Hospitalization)
  Sender: DR REDDYS
  Company Number: US-DRL-USA-USA/2025/07/011056

PATIENT
  Age: 58 Year
  Sex: Female

DRUGS (3)
  1. DOXYCYCLINE [Suspect]
     Active Substance: DOXYCYCLINE
     Indication: Cough
  2. GUAIFENESIN [Suspect]
     Active Substance: GUAIFENESIN
     Indication: Cough
  3. BENZONATATE [Concomitant]
     Active Substance: BENZONATATE
     Indication: Cough

REACTIONS (1)
  - Drug ineffective [Unknown]
